FAERS Safety Report 22158297 (Version 3)
Quarter: 2024Q1

REPORT INFORMATION
  Report Type: Spontaneous
  Country: GB (occurrence: GB)
  Receive Date: 20230331
  Receipt Date: 20240125
  Transmission Date: 20240410
  Serious: Yes (Other)
  Sender: FDA-Public Use
  Company Number: GB-ABBVIE-4711254

PATIENT

DRUGS (1)
  1. RISANKIZUMAB [Suspect]
     Active Substance: RISANKIZUMAB
     Indication: Psoriasis
     Route: 058

REACTIONS (1)
  - Prostate cancer [Unknown]
